FAERS Safety Report 5798176 (Version 2)
Quarter: 2020Q1

REPORT INFORMATION
  Report Type: Spontaneous
  Country: US (occurrence: US)
  Receive Date: 20050518
  Receipt Date: 20200116
  Transmission Date: 20200409
  Serious: Yes (Other)
  Sender: FDA-Public Use
  Company Number: US-SP-2005-00841

PATIENT
  Age: 35 Year
  Sex: Male

DRUGS (8)
  1. TUBERCULIN PPD [Suspect]
     Active Substance: TUBERCULIN PURIFIED PROTEIN DERIVATIVE
     Indication: TUBERCULIN TEST
     Dosage: FORM : NOT REPORTED START THERAPY DATE TEXT : NOT REPORTED
     Route: 065
  2. HYDROCHLOROTHIAZIDE. [Concomitant]
     Active Substance: HYDROCHLOROTHIAZIDE
  3. DIPHTHERIA AND TETANUS TOXOIDS [Suspect]
     Active Substance: DIPHTHERIA AND TETANUS TOXOIDS
     Indication: IMMUNISATION
     Route: 065
  4. TYPHOID VACCINE [Suspect]
     Active Substance: TYPHOID VACCINE
     Indication: IMMUNISATION
     Route: 065
  5. HEPATITIS A VACCINE [Suspect]
     Active Substance: HEPATITIS A VIRUS STRAIN HM175 ANTIGEN (FORMALDEHYDE INACTIVATED)
     Indication: IMMUNISATION
     Dosage: FORM : NOT REPORTED START THERAPY DATE TEXT : NOT REPORTED
     Route: 065
  6. MEASLES, MUMPS AND RUBELLA VACCINE [Suspect]
     Active Substance: MEASLES-MUMPS-RUBELLA VIRUS VACCINE
     Indication: IMMUNISATION
     Dosage: FORM : NOT REPORTED START THERAPY DATE TEXT : NOT REPORTED
     Route: 065
  7. BETA BLOCKING AGENTS [Concomitant]
     Active Substance: UNSPECIFIED INGREDIENT
  8. POLIOMYELITIS VACCINE NOS [Suspect]
     Active Substance: POLIOMYELITIS VACCINE
     Indication: IMMUNISATION
     Dosage: FORM : NOT REPORTED START THERAPY DATE TEXT : NOT REPORTED
     Route: 065

REACTIONS (10)
  - Influenza like illness [Unknown]
  - Necrosis [Unknown]
  - Malaise [Unknown]
  - Portal fibrosis [Unknown]
  - Autoimmune hepatitis [Unknown]
  - Fatigue [Unknown]
  - Plasma cells increased [Unknown]
  - Hepatic enzyme increased [Unknown]
  - Chronic hepatitis [Unknown]
  - Portal tract inflammation [Unknown]
